FAERS Safety Report 15463442 (Version 2)
Quarter: 2018Q4

REPORT INFORMATION
  Report Type: Spontaneous
  Country: CA (occurrence: CA)
  Receive Date: 20181004
  Receipt Date: 20181127
  Transmission Date: 20190204
  Serious: Yes (Hospitalization)
  Sender: FDA-Public Use
  Company Number: CA-CELLTRION INC.-2017CA017654

PATIENT

DRUGS (12)
  1. INFLECTRA [Suspect]
     Active Substance: INFLIXIMAB-DYYB
     Dosage: 315 MG/Q, CYCLIC (EVERY 2 6, WEEKS, THEN EVERY 8 WEEKS)
     Route: 042
     Dates: start: 20180125
  2. INFLECTRA [Suspect]
     Active Substance: INFLIXIMAB-DYYB
     Dosage: 315 MG/Q, CYCLIC (EVERY 2, 6, WEEKS, THEN EVERY 8  WEEKS)
     Route: 042
     Dates: start: 20180125
  3. INFLECTRA [Suspect]
     Active Substance: INFLIXIMAB-DYYB
     Dosage: 5 MG/KG, CYCLIC, EVERY 8 WEEKS
     Route: 042
     Dates: start: 20180323
  4. INFLECTRA [Suspect]
     Active Substance: INFLIXIMAB-DYYB
     Dosage: 10 MG/KG EVERY 8 WEEKS
     Route: 042
     Dates: start: 20180323
  5. INFLECTRA [Suspect]
     Active Substance: INFLIXIMAB-DYYB
     Dosage: 630 MG, CYCLIC (EVERY 8WEEKS)
     Route: 042
     Dates: start: 20180920, end: 20181115
  6. DIPHENHYDRAMINE. [Concomitant]
     Active Substance: DIPHENHYDRAMINE
     Dosage: UNK
  7. INFLECTRA [Suspect]
     Active Substance: INFLIXIMAB-DYYB
     Indication: CROHN^S DISEASE
     Dosage: 315 MG/Q, CYCLIC (EVERY 2,6, WEEKS, THEN EVERY 8 WEEKS)
     Route: 042
     Dates: start: 20171206
  8. INFLECTRA [Suspect]
     Active Substance: INFLIXIMAB-DYYB
     Dosage: 315 MG/Q, CYCLIC (EVERY 2,6, WEEKS, THEN EVERY 8 WEEKS)
     Route: 042
     Dates: start: 20171222
  9. INFLECTRA [Suspect]
     Active Substance: INFLIXIMAB-DYYB
     Dosage: 5 MG/KG, CYCLIC, EVERY 8 WEEKS
     Route: 042
     Dates: start: 20171206, end: 20180125
  10. INFLECTRA [Suspect]
     Active Substance: INFLIXIMAB-DYYB
     Dosage: 630 MG, EVERY 8 WEEKS
     Route: 042
     Dates: start: 20181115
  11. ACETAMINOPHEN. [Concomitant]
     Active Substance: ACETAMINOPHEN
     Dosage: UNK
  12. INFLECTRA [Suspect]
     Active Substance: INFLIXIMAB-DYYB
     Dosage: 630 MG, CYCLIC (EVERY 8WEEKS)
     Route: 042
     Dates: start: 20180712

REACTIONS (8)
  - Inappropriate schedule of product administration [Unknown]
  - Small intestinal obstruction [Unknown]
  - Blood pressure fluctuation [Unknown]
  - Drug ineffective [Unknown]
  - Abdominal distension [Unknown]
  - Drug effect incomplete [Unknown]
  - Diarrhoea [Unknown]
  - Abdominal pain [Unknown]

NARRATIVE: CASE EVENT DATE: 20171218
